FAERS Safety Report 16907328 (Version 1)
Quarter: 2019Q4

REPORT INFORMATION
  Report Type: Spontaneous
  Country: US (occurrence: US)
  Receive Date: 20191011
  Receipt Date: 20191011
  Transmission Date: 20200122
  Serious: Yes (Hospitalization)
  Sender: FDA-Public Use
  Company Number: US-SUNOVION-2019SUN004166

PATIENT
  Age: 63 Year
  Sex: Female
  Weight: 63.04 kg

DRUGS (2)
  1. LONHALA MAGNAIR [Suspect]
     Active Substance: GLYCOPYRROLATE
     Indication: ASTHMA
  2. LONHALA MAGNAIR [Suspect]
     Active Substance: GLYCOPYRROLATE
     Indication: CHRONIC OBSTRUCTIVE PULMONARY DISEASE
     Dosage: 25 ?G/ML, BID
     Route: 055
     Dates: start: 2018, end: 20191001

REACTIONS (3)
  - Off label use [Unknown]
  - Wheezing [Unknown]
  - Product dose omission [Unknown]

NARRATIVE: CASE EVENT DATE: 201909
